FAERS Safety Report 7416338-X (Version None)
Quarter: 2011Q2

REPORT INFORMATION
  Report Type: 
  Country: None (occurrence: None)
  Receive Date: 20110414
  Receipt Date: 20110408
  Transmission Date: 20111010
  Serious: Yes (Other)
  Sender: FDA-Public Use
  Company Number: US-ROXANE LABORATORIES, INC.-2011-RO-00488RO

PATIENT

DRUGS (7)
  1. METHADONE [Suspect]
     Indication: PAIN
  2. FENTANYL [Suspect]
     Indication: PAIN
  3. WARFARIN [Suspect]
     Indication: PAIN
  4. OXYCODONE [Suspect]
     Indication: PAIN
  5. CYCLOBENZAPRINE [Suspect]
     Indication: PAIN
  6. DIAZEPAM [Suspect]
     Indication: PAIN
  7. MORPHINE [Suspect]
     Indication: PAIN

REACTIONS (1)
  - DRUG TOLERANCE [None]
